FAERS Safety Report 8758303 (Version 1)
Quarter: 2012Q4

REPORT INFORMATION
  Report Type: 
  Country: CL (occurrence: CL)
  Receive Date: 20120829
  Receipt Date: 20120829
  Transmission Date: 20130627
  Serious: Yes (Hospitalization, Other)
  Sender: FDA-Public Use
  Company Number: CL-ELI_LILLY_AND_COMPANY-CL200605003531

PATIENT
  Age: 15 Year
  Sex: Male

DRUGS (3)
  1. OLANZAPINE [Suspect]
     Indication: ASPERGER^S DISORDER
     Dosage: 14 mg, UNK
     Dates: start: 2004
  2. VALPROIC ACID [Concomitant]
  3. SERTRALINE [Concomitant]
     Indication: MOOD ALTERED

REACTIONS (4)
  - Blood creatine phosphokinase increased [Recovered/Resolved]
  - Renal impairment [Not Recovered/Not Resolved]
  - Muscle strain [Recovered/Resolved]
  - Off label use [Unknown]
